FAERS Safety Report 9045728 (Version 1)
Quarter: 2013Q1

REPORT INFORMATION
  Report Type: Report from Study
  Country: US (occurrence: US)
  Receive Date: 20130131
  Receipt Date: 20130131
  Transmission Date: 20140127
  Serious: Yes (Hospitalization)
  Sender: FDA-Public Use
  Company Number: US-ABBOTT-12P-163-0998985-00

PATIENT
  Sex: Female
  Weight: 86.26 kg

DRUGS (16)
  1. HUMIRA [Suspect]
     Indication: RHEUMATOID ARTHRITIS
     Dates: start: 200712, end: 20111207
  2. METHOTREXATE [Concomitant]
     Indication: RHEUMATOID ARTHRITIS
     Dates: start: 200712, end: 201112
  3. LISINOPRIL [Concomitant]
     Indication: HYPERTENSION
  4. AMLODIPINE [Concomitant]
     Indication: HYPERTENSION
  5. CHLORTHALIDONE [Concomitant]
     Indication: HYPERTENSION
  6. CRESTOR [Concomitant]
     Indication: BLOOD CHOLESTEROL INCREASED
  7. CARVEDILOL [Concomitant]
     Indication: HYPERTENSION
  8. LEVOXYL [Concomitant]
     Indication: THYROID DISORDER
  9. NOVALOG [Concomitant]
     Indication: DIABETES MELLITUS
  10. LANTUS [Concomitant]
     Indication: DIABETES MELLITUS
  11. TRAMADOL [Concomitant]
     Indication: PAIN
  12. FOLIC ACID [Concomitant]
     Indication: RHEUMATOID ARTHRITIS
  13. ARANESP [Concomitant]
     Indication: ANAEMIA
  14. IRON [Concomitant]
     Indication: IRON DEFICIENCY
  15. AVASTIN [Concomitant]
     Indication: DIABETIC RETINOPATHY
  16. MULTIVITAMIN [Concomitant]
     Indication: VITAMIN SUPPLEMENTATION

REACTIONS (1)
  - Lung infection [Recovered/Resolved]
